FAERS Safety Report 4598125-3 (Version None)
Quarter: 2005Q1

REPORT INFORMATION
  Report Type: 
  Country: None (occurrence: None)
  Receive Date: 20050301
  Receipt Date: 20050301
  Transmission Date: 20050727
  Serious: Yes (Hospitalization)
  Sender: FDA-Public Use
  Company Number: None

PATIENT
  Age: 65 Year
  Sex: Female
  Weight: 47 kg

DRUGS (9)
  1. IRESSA (ZD1839 250 MG ORAL (ASTRA-ZENECA)) [Suspect]
     Indication: PANCREATIC CARCINOMA
     Dosage: 250 MG ORAL Q DAY
     Route: 048
     Dates: start: 20050211, end: 20050219
  2. DOXETAXEL 44 MG IV (AVENTIS) [Suspect]
     Indication: PANCREATIC CARCINOMA
     Dosage: 44 MG IV Q WEEK ON  DAY 1 AND 8
     Route: 042
     Dates: start: 20050211
  3. VICODIN [Concomitant]
  4. COUMADIN [Concomitant]
  5. URISTAT [Concomitant]
  6. DEXAMETHASONE [Concomitant]
  7. REGLAN [Concomitant]
  8. POTASSIUM CHLORIDE [Concomitant]
  9. MAGNESIUM SULFATE [Concomitant]

REACTIONS (6)
  - HAEMOGLOBIN ABNORMAL [None]
  - HYPOTENSION [None]
  - INTERNATIONAL NORMALISED RATIO ABNORMAL [None]
  - PROTHROMBIN LEVEL ABNORMAL [None]
  - SEPSIS [None]
  - WHITE BLOOD CELL COUNT ABNORMAL [None]
